FAERS Safety Report 21583435 (Version 1)
Quarter: 2022Q4

REPORT INFORMATION
  Report Type: Spontaneous
  Country: US (occurrence: US)
  Receive Date: 20221111
  Receipt Date: 20221111
  Transmission Date: 20230112
  Serious: No
  Sender: FDA-Public Use
  Company Number: US-drreddys-SPO/USA/22/0156610

PATIENT
  Age: 69 Year
  Sex: Female
  Weight: 47.17 kg

DRUGS (9)
  1. TIZANIDINE HYDROCHLORIDE [Suspect]
     Active Substance: TIZANIDINE HYDROCHLORIDE
     Indication: Arthralgia
     Dosage: 1-2 TABLETS BY MOUTH EVERY 6 HOURS
     Route: 048
     Dates: start: 20220925
  2. TIZANIDINE HYDROCHLORIDE [Suspect]
     Active Substance: TIZANIDINE HYDROCHLORIDE
     Indication: Sciatica
  3. TRAZODONE [Suspect]
     Active Substance: TRAZODONE HYDROCHLORIDE
     Indication: Product used for unknown indication
     Dosage: 3-100MG TABLETS AT BEDTIME HCL
  4. TRAZODONE [Suspect]
     Active Substance: TRAZODONE HYDROCHLORIDE
  5. CLONAZEPAM [Suspect]
     Active Substance: CLONAZEPAM
     Indication: Mixed anxiety and depressive disorder
     Dosage: 2MG TABLET TWICE DAILY AND 1/2 TABLET AT NIGHT
  6. CLONAZEPAM [Suspect]
     Active Substance: CLONAZEPAM
     Dosage: 2MG TABLET TWICE DAILY AND 1/2 TABLET AT NIGHT
  7. OXYCODONE [Suspect]
     Active Substance: OXYCODONE
     Indication: Product used for unknown indication
  8. PAXLOVID [Suspect]
     Active Substance: NIRMATRELVIR\RITONAVIR
     Indication: COVID-19
     Dosage: 1 LARGER PILL AND 2 SMALLER PILLS TWICE DAILY FOR 5 DAYS
     Dates: start: 20221010, end: 20221014
  9. DULOXETINE [Concomitant]
     Active Substance: DULOXETINE
     Indication: Mixed anxiety and depressive disorder

REACTIONS (1)
  - Withdrawal syndrome [Unknown]

NARRATIVE: CASE EVENT DATE: 20221010
